FAERS Safety Report 9674955 (Version 1)
Quarter: 2013Q4

REPORT INFORMATION
  Report Type: Spontaneous
  Country: US (occurrence: None)
  Receive Date: 20131106
  Receipt Date: 20131106
  Transmission Date: 20140711
  Serious: Yes (Other)
  Sender: FDA-Public Use
  Company Number: None

PATIENT
  Age: 42 Year
  Sex: Male

DRUGS (1)
  1. CHORIONIC GONADOTROPIN 10ML AMERI PHAR [Suspect]
     Route: 058
     Dates: start: 20131014, end: 20131104

REACTIONS (1)
  - Drug effect decreased [None]
